FAERS Safety Report 7182765 (Version 4)
Quarter: 2013Q2

REPORT INFORMATION
  Report Type: Spontaneous
  Country: US (occurrence: US)
  Receive Date: 20091120
  Receipt Date: 20130409
  Transmission Date: 20140414
  Serious: Yes (Hospitalization, Other)
  Sender: FDA-Public Use
  Company Number: US-ALEXION-A200900960

PATIENT
  Age: 45 Year
  Sex: Female
  Weight: 93.7 kg

DRUGS (17)
  1. SOLIRIS [Suspect]
     Indication: PROPHYLAXIS AGAINST TRANSPLANT REJECTION
     Dosage: 1200 MG, X2
     Route: 042
  2. SOLIRIS [Suspect]
     Dosage: 600 MG, X12
     Route: 042
  3. BACTRIM DS [Suspect]
     Dosage: 160-800 MG TABLET QD
     Route: 048
  4. CELLCEPT [Concomitant]
     Dosage: 750 MG, BID
     Route: 048
  5. PROGRAF [Concomitant]
     Dosage: 5 MG, BID
     Route: 048
  6. PROGRAF [Concomitant]
     Dosage: 6 MG, BID
     Route: 048
  7. PREDNISONE [Concomitant]
     Indication: RENAL TRANSPLANT
     Dosage: 25 MG, QD
     Route: 048
  8. PREDNISONE [Concomitant]
     Dosage: 5 MG QD  (WITH 20 MG QD = TOTAL 25 MG)
     Route: 048
  9. PREDNISONE [Concomitant]
     Dosage: 10 MG, TID
     Route: 048
  10. AMBIEN [Concomitant]
     Indication: SLEEP DISORDER
     Dosage: 10 MG AT HS PRN
     Route: 048
  11. AMLODIPINE [Concomitant]
     Dosage: 10 MG  (1/2 TAB) QD
     Route: 048
  12. AMIODARONE [Concomitant]
     Dosage: 200 MG QD
     Route: 048
  13. COLACE [Concomitant]
     Dosage: 100 MG BID
     Route: 048
  14. MULTIVITAMIN [Concomitant]
     Dosage: 1 CAPSULE QD
     Route: 048
  15. PRILOSEC [Concomitant]
     Dosage: 20 MG QD
     Route: 048
  16. VALCYTE [Concomitant]
     Dosage: 450 MG QD
     Route: 048
  17. ROXICODONE [Concomitant]
     Indication: PAIN
     Dosage: 5 MG, PRN 1-3 TABLETS Q4H
     Route: 048

REACTIONS (4)
  - Transplant rejection [Recovered/Resolved]
  - Hyperkalaemia [Recovering/Resolving]
  - Blood creatinine increased [Recovering/Resolving]
  - Wound dehiscence [Recovering/Resolving]
